FAERS Safety Report 8346169-8 (Version None)
Quarter: 2012Q2

REPORT INFORMATION
  Report Type: 
  Country: None (occurrence: None)
  Receive Date: 20120507
  Receipt Date: 20120426
  Transmission Date: 20120825
  Serious: Yes (Hospitalization)
  Sender: FDA-Public Use
  Company Number: TPA2012A02442

PATIENT
  Sex: Male

DRUGS (5)
  1. DEXILANT [Suspect]
     Indication: EROSIVE OESOPHAGITIS
     Dosage: 60 MG, BID, PER ORAL 30 MG, 1 IN 1 D, PER ORAL 30 MG, EVERY OTHER DAY, PER ORAL
     Route: 048
     Dates: start: 20120101
  2. DEXILANT [Suspect]
     Indication: EROSIVE OESOPHAGITIS
     Dosage: 60 MG, BID, PER ORAL 30 MG, 1 IN 1 D, PER ORAL 30 MG, EVERY OTHER DAY, PER ORAL
     Route: 048
     Dates: start: 20110701
  3. DEXILANT [Suspect]
     Indication: EROSIVE OESOPHAGITIS
     Dosage: 60 MG, BID, PER ORAL 30 MG, 1 IN 1 D, PER ORAL 30 MG, EVERY OTHER DAY, PER ORAL
     Route: 048
     Dates: start: 20120301, end: 20120101
  4. DEXILANT [Suspect]
     Indication: EROSIVE OESOPHAGITIS
     Dosage: 60 MG, BID, PER ORAL 30 MG, 1 IN 1 D, PER ORAL 30 MG, EVERY OTHER DAY, PER ORAL
     Route: 048
     Dates: start: 20110701, end: 20120126
  5. PLAVIX [Concomitant]

REACTIONS (2)
  - CORONARY ARTERIAL STENT INSERTION [None]
  - OVERDOSE [None]
